FAERS Safety Report 8533602-1 (Version None)
Quarter: 2012Q3

REPORT INFORMATION
  Report Type: 
  Country: None (occurrence: None)
  Receive Date: 20120724
  Receipt Date: 20120716
  Transmission Date: 20120928
  Serious: Yes (Other)
  Sender: FDA-Public Use
  Company Number: US-JNJFOC-20120707758

PATIENT
  Sex: Female
  Weight: 86.18 kg

DRUGS (1)
  1. REMICADE [Suspect]
     Indication: COLITIS ULCERATIVE
     Dosage: STARTED 4 TO 5 YEARS AGO, MAYBE LONGER
     Route: 042
     Dates: end: 20120101

REACTIONS (2)
  - BREAST CANCER STAGE I [None]
  - RETINAL DETACHMENT [None]
